FAERS Safety Report 19613439 (Version 1)
Quarter: 2021Q3

REPORT INFORMATION
  Report Type: Spontaneous
  Country: US (occurrence: US)
  Receive Date: 20210726
  Receipt Date: 20210726
  Transmission Date: 20211014
  Serious: Yes (Hospitalization)
  Sender: FDA-Public Use
  Company Number: None

PATIENT
  Age: 65 Year
  Sex: Female

DRUGS (1)
  1. GLEEVEC [Suspect]
     Active Substance: IMATINIB MESYLATE
     Dosage: ?          OTHER DOSE:400;OTHER FREQUENCY:OTHER;?
     Route: 048
     Dates: start: 201804

REACTIONS (2)
  - Dysphagia [None]
  - Internal haemorrhage [None]

NARRATIVE: CASE EVENT DATE: 20210709
